FAERS Safety Report 4397926-4 (Version None)
Quarter: 2004Q3

REPORT INFORMATION
  Report Type: 
  Country: None (occurrence: None)
  Receive Date: 20040713
  Receipt Date: 20040629
  Transmission Date: 20050211
  Serious: Yes (Other)
  Sender: FDA-Public Use
  Company Number: US-JNJFOC-20040502805

PATIENT
  Age: 52 Year
  Sex: Female

DRUGS (6)
  1. DURAGESIC [Suspect]
     Indication: PAIN
     Dosage: SEE IMAGE
     Route: 062
     Dates: start: 20031201, end: 20040101
  2. DURAGESIC [Suspect]
     Indication: PAIN
     Dosage: SEE IMAGE
     Route: 062
     Dates: start: 20040101, end: 20040618
  3. PREDNISONE TAB [Concomitant]
  4. NORVASC [Concomitant]
  5. AMITRIPTYLINE HCL [Concomitant]
  6. PROMETHAZINE HYDROCHLORIDE TAB [Concomitant]

REACTIONS (13)
  - AMNESIA [None]
  - APPLICATION SITE ERYTHEMA [None]
  - APPLICATION SITE URTICARIA [None]
  - APPLICATION SITE VESICLES [None]
  - BLINDNESS [None]
  - CONTUSION [None]
  - DIZZINESS [None]
  - FALL [None]
  - INADEQUATE ANALGESIA [None]
  - NAUSEA [None]
  - ORTHOSTATIC HYPOTENSION [None]
  - SYSTEMIC LUPUS ERYTHEMATOSUS [None]
  - TRANSIENT ISCHAEMIC ATTACK [None]
